FAERS Safety Report 15207199 (Version 1)
Quarter: 2018Q3

REPORT INFORMATION
  Report Type: Spontaneous
  Country: US (occurrence: US)
  Receive Date: 20180727
  Receipt Date: 20180727
  Transmission Date: 20181010
  Serious: No
  Sender: FDA-Public Use
  Company Number: US-BAYER-2018-141055

PATIENT
  Age: 62 Year
  Sex: Female
  Weight: 81.64 kg

DRUGS (1)
  1. ALEVE [Suspect]
     Active Substance: NAPROXEN SODIUM
     Indication: NERVE COMPRESSION
     Dosage: 440 MG, ONCE
     Route: 048
     Dates: start: 20180723, end: 20180723

REACTIONS (8)
  - Rash [None]
  - Product use in unapproved indication [Unknown]
  - Malaise [Recovered/Resolved]
  - Nausea [Recovering/Resolving]
  - Fatigue [Recovered/Resolved]
  - Diarrhoea [Recovered/Resolved]
  - Constipation [Recovered/Resolved]
  - Hunger [Recovered/Resolved]

NARRATIVE: CASE EVENT DATE: 201807
